FAERS Safety Report 6978573-4 (Version None)
Quarter: 2010Q3

REPORT INFORMATION
  Report Type: 
  Country: None (occurrence: None)
  Receive Date: 20100913
  Receipt Date: 20100908
  Transmission Date: 20110219
  Serious: Yes (Other)
  Sender: FDA-Public Use
  Company Number: FR-ROCHE-595815

PATIENT
  Sex: Male

DRUGS (1)
  1. RIVOTRIL [Suspect]
     Indication: PRODUCT USED FOR UNKNOWN INDICATION
     Route: 065

REACTIONS (4)
  - ACCIDENTAL EXPOSURE [None]
  - HYPERSOMNIA [None]
  - POISONING DELIBERATE [None]
  - SOMNOLENCE [None]
